FAERS Safety Report 5907460-5 (Version None)
Quarter: 2008Q4

REPORT INFORMATION
  Report Type: 
  Country: None (occurrence: None)
  Receive Date: 20081003
  Receipt Date: 20080926
  Transmission Date: 20090506
  Serious: Yes (Hospitalization)
  Sender: FDA-Public Use
  Company Number: B0538217A

PATIENT
  Age: 45 Year
  Sex: Female

DRUGS (2)
  1. WELLBUTRIN [Suspect]
     Indication: DEPRESSION
     Route: 048
     Dates: start: 20080418, end: 20080913
  2. ANAFRANIL [Suspect]
     Indication: DEPRESSION
     Route: 048
     Dates: end: 20080913

REACTIONS (5)
  - ARRHYTHMIA [None]
  - CONFUSIONAL STATE [None]
  - CONVULSION [None]
  - OVERDOSE [None]
  - SUICIDE ATTEMPT [None]
